FAERS Safety Report 6289102-5 (Version None)
Quarter: 2009Q3

REPORT INFORMATION
  Report Type: 
  Country: None (occurrence: None)
  Receive Date: 20090729
  Receipt Date: 20090716
  Transmission Date: 20100115
  Serious: Yes (Life-Threatening, Hospitalization)
  Sender: FDA-Public Use
  Company Number: JP-ASTRAZENECA-2009SE04479

PATIENT
  Age: 77 Year
  Sex: Female

DRUGS (4)
  1. SEROQUEL [Suspect]
     Indication: SCHIZOPHRENIA
     Route: 048
     Dates: start: 20090703, end: 20090703
  2. IMPROMEN [Concomitant]
     Route: 065
  3. CONTOMIN [Concomitant]
     Route: 065
  4. ZYPREXA [Concomitant]
     Route: 065

REACTIONS (1)
  - PERIPHERAL CIRCULATORY FAILURE [None]
